FAERS Safety Report 12302026 (Version 2)
Quarter: 2016Q2

REPORT INFORMATION
  Report Type: Spontaneous
  Country: US (occurrence: US)
  Receive Date: 20160425
  Receipt Date: 20160621
  Transmission Date: 20160815
  Serious: No
  Sender: FDA-Public Use
  Company Number: US-PFIZER INC-2016186803

PATIENT
  Age: 69 Year
  Sex: Female
  Weight: 56.25 kg

DRUGS (3)
  1. LYRICA [Suspect]
     Active Substance: PREGABALIN
     Indication: NERVE INJURY
     Dosage: 3 A DAY
  2. LYRICA [Suspect]
     Active Substance: PREGABALIN
     Dosage: 500 MG, DAILY (100 MG, CAPSULE, 5 TIMES A DAY)
     Route: 048
  3. TENORMIN [Concomitant]
     Active Substance: ATENOLOL
     Dosage: UNK

REACTIONS (5)
  - Product use issue [Unknown]
  - Pain in extremity [Not Recovered/Not Resolved]
  - Condition aggravated [Not Recovered/Not Resolved]
  - Drug ineffective [Unknown]
  - Emotional disorder [Unknown]
